FAERS Safety Report 8393333-8 (Version None)
Quarter: 2012Q2

REPORT INFORMATION
  Report Type: 
  Country: None (occurrence: None)
  Receive Date: 20120529
  Receipt Date: 20120524
  Transmission Date: 20120825
  Serious: Yes (Hospitalization, Other)
  Sender: FDA-Public Use
  Company Number: AT-JNJFOC-20110900436

PATIENT
  Sex: Female

DRUGS (5)
  1. ASPIRIN [Suspect]
     Indication: MYOCARDIAL INFARCTION
     Route: 042
     Dates: start: 20110801
  2. REOPRO [Suspect]
     Indication: MYOCARDIAL INFARCTION
     Dosage: 4.5ML/50 AT A RATE OF 2.5ML/H, BEGIN 11:30 A.M
     Route: 065
     Dates: start: 20110801
  3. EFFIENT [Suspect]
     Indication: MYOCARDIAL INFARCTION
     Route: 065
     Dates: start: 20110801
  4. HEPARIN [Suspect]
     Indication: MYOCARDIAL INFARCTION
     Dosage: 4000IE
     Route: 042
     Dates: start: 20110801
  5. REOPRO [Suspect]
     Route: 065
     Dates: start: 20110801

REACTIONS (2)
  - DRUG INEFFECTIVE [None]
  - CEREBRAL HAEMORRHAGE [None]
